FAERS Safety Report 9549305 (Version 3)
Quarter: 2013Q4

REPORT INFORMATION
  Report Type: Spontaneous
  Country: GB (occurrence: None)
  Receive Date: 20130919
  Receipt Date: 20131112
  Transmission Date: 20140711
  Serious: Yes (Hospitalization)
  Sender: FDA-Public Use
  Company Number: AG-2013-015311

PATIENT
  Age: 74 Year
  Sex: Male

DRUGS (14)
  1. CHLORAMBUCIL [Suspect]
     Indication: CHRONIC LYMPHOCYTIC LEUKAEMIA
     Dosage: UNKNOWN (20 MILLIGRAM), ORAL
     Route: 048
     Dates: start: 20130327, end: 20130904
  2. OFATUMUMAB [Suspect]
     Indication: CHRONIC LYMPHOCYTIC LEUKAEMIA
     Dosage: UNKNOWN (1000 MILLIGRAM), INTRAVENOUS (NOT OTHERWISE SPECIFIED)
     Route: 042
     Dates: start: 20130327, end: 20130829
  3. PARACETAMOL (PARACETAMOL) (UNKNOWN) [Concomitant]
  4. CHLORPHENIRAMINE (CHLORPHENAMINE) (UNKNOWN)? [Concomitant]
  5. PREDNISOLONE (PREDNISOLONE) (UNKNOWN)? [Concomitant]
  6. ALLOPURINOL (ALLOPURINOL) (UNKNOWN) [Concomitant]
  7. METOCLOPRAMIDE (METOCLOPRAMIDE) (UNKNOWN) [Concomitant]
  8. ACYCLOVIR (ACICLOVIR) (UNKNOWN) [Concomitant]
  9. G-CSF (COLONY STIMULATING FACTORS) (UNKNOWN) [Concomitant]
  10. PREDNISONE (PREDNISONE) (UNKNOWN) [Concomitant]
  11. AMLODIPINE (AMLODIPINE) (UNKNOWN) [Concomitant]
  12. METFORMIN (METFORMIN) (UNKNOWN) [Concomitant]
  13. ONBREZ (INDACATEROL) (UNKNOWN) [Concomitant]
  14. SEEBRI BREEZHALER (GLYCOPYRRONIUM BROMIDE) [Concomitant]

REACTIONS (5)
  - Infection [None]
  - Chills [None]
  - Dyspnoea [None]
  - Pyrexia [None]
  - Lung infection [None]
